FAERS Safety Report 12895105 (Version 1)
Quarter: 2016Q4

REPORT INFORMATION
  Report Type: Spontaneous
  Country: US (occurrence: US)
  Receive Date: 20161028
  Receipt Date: 20161028
  Transmission Date: 20170207
  Serious: No
  Sender: FDA-Public Use
  Company Number: None

PATIENT
  Sex: Female
  Weight: 53.57 kg

DRUGS (2)
  1. COSENTYX [Suspect]
     Active Substance: SECUKINUMAB
     Indication: PSORIASIS
     Dosage: 300MG Q4WEEKS SUBCUTANEOUSLY
     Route: 058
     Dates: start: 201601
  2. COSENTYX [Suspect]
     Active Substance: SECUKINUMAB
     Indication: PSORIATIC ARTHROPATHY
     Dosage: 300MG Q4WEEKS SUBCUTANEOUSLY
     Route: 058
     Dates: start: 201601

REACTIONS (1)
  - Rhinorrhoea [None]
